FAERS Safety Report 9092898 (Version 1)
Quarter: 2013Q1

REPORT INFORMATION
  Report Type: Spontaneous
  Country: US (occurrence: None)
  Receive Date: 20130213
  Receipt Date: 20130213
  Transmission Date: 20140127
  Serious: Yes (Other)
  Sender: FDA-Public Use
  Company Number: None

PATIENT
  Age: 68 Year
  Sex: Female

DRUGS (1)
  1. XELODA [Suspect]
     Indication: MALIGNANT NEOPLASM OF AMPULLA OF VATER
     Dosage: 500MG  2BID7DAYS ON, 7OFF  PO
     Route: 048
     Dates: start: 20130109, end: 20130212

REACTIONS (2)
  - Pruritus [None]
  - Paraesthesia [None]
